FAERS Safety Report 9129277 (Version 1)
Quarter: 2013Q1

REPORT INFORMATION
  Report Type: Spontaneous
  Country: US (occurrence: US)
  Receive Date: 20130228
  Receipt Date: 20130228
  Transmission Date: 20140127
  Serious: No
  Sender: FDA-Public Use
  Company Number: US-ABBOTT-13P-163-1044090-00

PATIENT
  Sex: Male
  Weight: 85.81 kg

DRUGS (2)
  1. ANDROGEL [Suspect]
     Indication: BLOOD TESTOSTERONE DECREASED
     Dosage: 1 PUMP ACTUATION
     Dates: start: 201207, end: 201210
  2. ANDROGEL [Suspect]
     Dosage: 2 PUMP ACTUATIONS
     Dates: start: 201210

REACTIONS (3)
  - Weight increased [Not Recovered/Not Resolved]
  - Hair growth abnormal [Not Recovered/Not Resolved]
  - Blood testosterone decreased [Not Recovered/Not Resolved]
